FAERS Safety Report 4796393-6 (Version None)
Quarter: 2005Q4

REPORT INFORMATION
  Report Type: 
  Country: None (occurrence: None)
  Receive Date: 20051007
  Receipt Date: 20050926
  Transmission Date: 20060501
  Serious: Yes (Other)
  Sender: FDA-Public Use
  Company Number: 2005134493

PATIENT
  Sex: Male

DRUGS (1)
  1. SUDAFED (PSEUDOEPHEDRINE) [Suspect]
     Indication: INFLUENZA LIKE ILLNESS
     Dosage: ORAL
     Route: 048

REACTIONS (3)
  - DIARRHOEA [None]
  - HALLUCINATION [None]
  - RECTAL HAEMORRHAGE [None]
